FAERS Safety Report 9404687 (Version 1)
Quarter: 2013Q3

REPORT INFORMATION
  Report Type: Spontaneous
  Country: US (occurrence: None)
  Receive Date: 20130716
  Receipt Date: 20130716
  Transmission Date: 20140515
  Serious: Yes (Hospitalization)
  Sender: FDA-Public Use
  Company Number: None

PATIENT
  Age: 77 Year
  Sex: Male
  Weight: 98.7 kg

DRUGS (1)
  1. CYCLOPHOSPHAMIDE [Suspect]
     Indication: NEOPLASM
     Route: 042
     Dates: start: 20130625, end: 20130625

REACTIONS (2)
  - Neutropenic sepsis [None]
  - Wrong drug administered [None]
